FAERS Safety Report 13329479 (Version 1)
Quarter: 2017Q1

REPORT INFORMATION
  Report Type: Spontaneous
  Country: US (occurrence: US)
  Receive Date: 20170313
  Receipt Date: 20170313
  Transmission Date: 20170428
  Serious: No
  Sender: FDA-Public Use
  Company Number: US-SHIRE-US201705446

PATIENT
  Sex: Male
  Weight: 74.83 kg

DRUGS (4)
  1. ASA [Concomitant]
     Active Substance: ASPIRIN
     Indication: PRODUCT USED FOR UNKNOWN INDICATION
     Dosage: 81 MG (LOW DOSE), 1X/DAY:QD
     Route: 048
  2. XIIDRA [Suspect]
     Active Substance: LIFITEGRAST
     Indication: DRY EYE
     Dosage: 1 GTT EACH EYE, 2X/DAY:BID
     Route: 047
     Dates: start: 2016
  3. METFORMIN HCL [Concomitant]
     Active Substance: METFORMIN HYDROCHLORIDE
     Indication: DIABETES MELLITUS
     Dosage: 500 MG, 1X/DAY:QD
     Route: 048
  4. HYDROCHLOROTHIAZIDE AND LISINOPRIL [Concomitant]
     Active Substance: HYDROCHLOROTHIAZIDE\LISINOPRIL
     Indication: HYPERTENSION
     Dosage: 12.5 MG / 20 MG, 1X/DAY:QD
     Route: 048

REACTIONS (2)
  - Instillation site lacrimation [Recovered/Resolved]
  - Instillation site reaction [Recovered/Resolved]

NARRATIVE: CASE EVENT DATE: 2016
